FAERS Safety Report 5048401-5 (Version None)
Quarter: 2006Q2

REPORT INFORMATION
  Report Type: 
  Country: None (occurrence: None)
  Receive Date: 20060601
  Receipt Date: 20060321
  Transmission Date: 20061013
  Serious: No
  Sender: FDA-Public Use
  Company Number: 2006PV010788

PATIENT
  Age: 53 Year
  Sex: Female
  Weight: 90.7194 kg

DRUGS (5)
  1. BYETTA [Suspect]
     Indication: DIABETES MELLITUS NON-INSULIN-DEPENDENT
     Dosage: SEE IMAGE
     Route: 058
     Dates: end: 20060309
  2. BYETTA [Suspect]
     Indication: DIABETES MELLITUS NON-INSULIN-DEPENDENT
     Dosage: SEE IMAGE
     Route: 058
     Dates: start: 20051205
  3. LANTUS [Concomitant]
  4. PLAVIX [Concomitant]
  5. DIOVAN HCT [Concomitant]

REACTIONS (7)
  - BLOOD UREA INCREASED [None]
  - CHILLS [None]
  - FEELING ABNORMAL [None]
  - FEELING COLD [None]
  - MALAISE [None]
  - NAUSEA [None]
  - VOMITING [None]
